FAERS Safety Report 5435775-6 (Version None)
Quarter: 2007Q3

REPORT INFORMATION
  Report Type: 
  Country: None (occurrence: None)
  Receive Date: 20070828
  Receipt Date: 20070828
  Transmission Date: 20080115
  Serious: Yes (Hospitalization)
  Sender: FDA-Public Use
  Company Number: None

PATIENT
  Sex: Female
  Weight: 97 kg

DRUGS (10)
  1. SUNITINIB [Suspect]
     Indication: RENAL CANCER METASTATIC
     Dosage: 50 MG DAILY X 28 DAYS PO
     Route: 048
     Dates: start: 20070723, end: 20070819
  2. MORPHINE [Concomitant]
  3. PERCOCET [Concomitant]
  4. COMPAZINE [Concomitant]
  5. TOPROL-XL [Concomitant]
  6. MAVIK [Concomitant]
  7. VYTORIN [Concomitant]
  8. ASPIRIN [Concomitant]
  9. CALCIUM [Concomitant]
  10. ARIVAN [Concomitant]

REACTIONS (1)
  - DYSPNOEA [None]
